FAERS Safety Report 12877292 (Version 3)
Quarter: 2016Q4

REPORT INFORMATION
  Report Type: Spontaneous
  Country: JP (occurrence: JP)
  Receive Date: 20161024
  Receipt Date: 20161207
  Transmission Date: 20170207
  Serious: Yes (Hospitalization, Other)
  Sender: FDA-Public Use
  Company Number: PHJP2016JP030033

PATIENT
  Age: 68 Year
  Sex: Male

DRUGS (2)
  1. EXELON PATCH [Suspect]
     Active Substance: RIVASTIGMINE
     Indication: DEMENTIA ALZHEIMER^S TYPE
     Dosage: UNK
     Route: 062
     Dates: start: 201203
  2. PLETAAL [Concomitant]
     Active Substance: CILOSTAZOL
     Indication: DEMENTIA ALZHEIMER^S TYPE
     Dosage: UNK
     Route: 065
     Dates: start: 201203

REACTIONS (12)
  - Muscle tightness [Recovered/Resolved]
  - Abdominal pain upper [Unknown]
  - Altered state of consciousness [Recovered/Resolved]
  - Tongue coated [Recovered/Resolved]
  - Atrophic glossitis [Recovered/Resolved]
  - Chest discomfort [Recovered/Resolved]
  - Depression [Recovered/Resolved]
  - Abdominal tenderness [Recovered/Resolved]
  - Blood pressure decreased [Recovered/Resolved]
  - Bradycardia [Recovered/Resolved]
  - Musculoskeletal chest pain [Recovered/Resolved]
  - Malaise [Recovered/Resolved]
